FAERS Safety Report 18180197 (Version 1)
Quarter: 2020Q3

REPORT INFORMATION
  Report Type: Spontaneous
  Country: US (occurrence: US)
  Receive Date: 20200820
  Receipt Date: 20200820
  Transmission Date: 20201103
  Serious: No
  Sender: FDA-Public Use
  Company Number: None

PATIENT
  Sex: Female

DRUGS (1)
  1. CYCLOPHOSPHAMIDE 25MG ROXANE [Suspect]
     Active Substance: CYCLOPHOSPHAMIDE
     Indication: CEREBRAL ARTERITIS
     Route: 048
     Dates: start: 20200624

REACTIONS (2)
  - Heart rate increased [None]
  - Atrial fibrillation [None]
